FAERS Safety Report 17658891 (Version 1)
Quarter: 2020Q2

REPORT INFORMATION
  Report Type: Report from Study
  Country: US (occurrence: US)
  Receive Date: 20200413
  Receipt Date: 20200413
  Transmission Date: 20200713
  Serious: Yes (Other)
  Sender: FDA-Public Use
  Company Number: US-ROCHE-2576840

PATIENT
  Sex: Male

DRUGS (5)
  1. ESBRIET [Suspect]
     Active Substance: PIRFENIDONE
     Indication: BLOOD CHOLESTEROL INCREASED
     Dosage: TAKE 3 CAPSULE(S) BY MOUTH 3 TIMES A DAY WITH MEAL
     Route: 048
  2. ESBRIET [Suspect]
     Active Substance: PIRFENIDONE
     Indication: IDIOPATHIC PULMONARY FIBROSIS
  3. ESBRIET [Suspect]
     Active Substance: PIRFENIDONE
     Indication: HYPERTENSION
  4. ESBRIET [Suspect]
     Active Substance: PIRFENIDONE
     Indication: BLADDER CANCER
  5. ESBRIET [Suspect]
     Active Substance: PIRFENIDONE
     Indication: DIABETES MELLITUS

REACTIONS (1)
  - Bladder cancer [Unknown]
